FAERS Safety Report 8571050-9 (Version None)
Quarter: 2012Q3

REPORT INFORMATION
  Report Type: 
  Country: None (occurrence: None)
  Receive Date: 20120730
  Receipt Date: 20120730
  Transmission Date: 20120928
  Serious: No
  Sender: FDA-Public Use
  Company Number: None

PATIENT

DRUGS (2)
  1. ACETAMINOPHEN [Suspect]
     Indication: PYREXIA
     Dosage: 5MLS EVERY 4 HOURS PO
     Route: 048
     Dates: start: 20120724, end: 20120726
  2. ACETAMINOPHEN [Suspect]
     Indication: TEETHING
     Dosage: 5MLS EVERY 4 HOURS PO
     Route: 048
     Dates: start: 20120724, end: 20120726

REACTIONS (9)
  - CHOKING [None]
  - ABNORMAL BEHAVIOUR [None]
  - RHINORRHOEA [None]
  - NO REACTION ON PREVIOUS EXPOSURE TO DRUG [None]
  - PRODUCT QUALITY ISSUE [None]
  - DYSPNOEA [None]
  - SCREAMING [None]
  - OCULAR HYPERAEMIA [None]
  - FOAMING AT MOUTH [None]
